FAERS Safety Report 4755058-7 (Version None)
Quarter: 2005Q3

REPORT INFORMATION
  Report Type: 
  Country: None (occurrence: None)
  Receive Date: 20050825
  Receipt Date: 20050817
  Transmission Date: 20060218
  Serious: Yes (Hospitalization)
  Sender: FDA-Public Use
  Company Number: 2005082071

PATIENT
  Age: 76 Year
  Sex: Male
  Weight: 50 kg

DRUGS (9)
  1. LIPITOR [Suspect]
     Indication: HYPERCHOLESTEROLAEMIA
     Dosage: 10 MG (10 MG, 1 IN 1 D), ORAL
     Route: 048
     Dates: start: 20050324, end: 20050519
  2. BASEN (VOGLIBOSE) [Suspect]
     Indication: DIABETES MELLITUS
     Dosage: 0.6 MG (0.2 MG, 3 IN 1 D), ORAL
     Route: 048
     Dates: start: 19990119, end: 20050523
  3. KETAS (UBUDILAST) [Suspect]
     Indication: CEREBRAL INFARCTION
     Dosage: 20 MG (10 MG, 2 IN 1 D), ORAL
     Route: 048
     Dates: start: 20050324, end: 20050519
  4. TICLOPIDINE HCL [Concomitant]
  5. MUNOBAL (FELODIPINE) [Concomitant]
  6. DEPAS (ETIZOLAM) [Concomitant]
  7. GASTER OD (FAMOTIDINE) [Concomitant]
  8. MUCOSOLVAN (AMBROXOL HYDROCHLORIDE) [Concomitant]
  9. MUCODYNE (CARBOCISTEINE) [Concomitant]

REACTIONS (11)
  - ANAEMIA [None]
  - AUTOIMMUNE DISORDER [None]
  - BILIARY CIRRHOSIS PRIMARY [None]
  - BLOOD TEST ABNORMAL [None]
  - DIVERTICULUM INTESTINAL [None]
  - GASTRITIS [None]
  - HYPERTENSION [None]
  - LIVER DISORDER [None]
  - LYMPHOCYTE STIMULATION TEST POSITIVE [None]
  - OCCULT BLOOD POSITIVE [None]
  - POLYP [None]
